FAERS Safety Report 21692181 (Version 1)
Quarter: 2022Q4

REPORT INFORMATION
  Report Type: Spontaneous
  Country: IN (occurrence: IN)
  Receive Date: 20221207
  Receipt Date: 20221207
  Transmission Date: 20230112
  Serious: Yes (Other)
  Sender: FDA-Public Use
  Company Number: IN-Shilpa Medicare Limited-SML-IN-2022-01570

PATIENT

DRUGS (1)
  1. IMATINIB [Suspect]
     Active Substance: IMATINIB
     Indication: Malignant melanoma

REACTIONS (3)
  - Disease progression [Unknown]
  - Drug ineffective [Unknown]
  - Off label use [Unknown]
